FAERS Safety Report 9356713 (Version 2)
Quarter: 2013Q3

REPORT INFORMATION
  Report Type: Report from Study
  Country: JP (occurrence: JP)
  Receive Date: 20130619
  Receipt Date: 20130731
  Transmission Date: 20140515
  Serious: Yes (Other)
  Sender: FDA-Public Use
  Company Number: PHHY2013JP061720

PATIENT
  Age: 78 Year
  Sex: Female
  Weight: 47 kg

DRUGS (9)
  1. AFINITOR [Suspect]
     Indication: METASTATIC RENAL CELL CARCINOMA
     Dosage: 10 MG, DAILY
     Route: 048
     Dates: start: 20110916, end: 20111020
  2. AFINITOR [Suspect]
     Dosage: 5 MG, DAILY
     Route: 048
     Dates: start: 20111021, end: 20111124
  3. EXCEGRAN [Concomitant]
     Dosage: 200 MG
     Route: 048
     Dates: start: 20100809
  4. MAGLAX [Concomitant]
     Dosage: 990 MG
     Route: 048
     Dates: start: 20100809
  5. EBRANTIL [Concomitant]
     Dosage: 30 MG
     Route: 048
     Dates: start: 20100809
  6. PARIET [Concomitant]
     Dosage: 20 MG
     Route: 048
     Dates: start: 20100809
  7. FERO-GRADUMET [Concomitant]
     Dosage: 105 MG
     Route: 048
     Dates: start: 20100809
  8. CODEINE [Concomitant]
     Dosage: 6 G
     Route: 048
     Dates: start: 20110909
  9. THYRADIN S [Concomitant]
     Dosage: 25 MG
     Route: 048
     Dates: start: 20101023, end: 20110923

REACTIONS (5)
  - C-reactive protein increased [Unknown]
  - Haemoglobin decreased [Unknown]
  - Renal cell carcinoma [Not Recovered/Not Resolved]
  - Malignant neoplasm progression [Not Recovered/Not Resolved]
  - General physical health deterioration [Unknown]
